FAERS Safety Report 10601553 (Version 1)
Quarter: 2014Q4

REPORT INFORMATION
  Report Type: Spontaneous
  Country: US (occurrence: None)
  Receive Date: 20141121
  Receipt Date: 20141121
  Transmission Date: 20150529
  Serious: No
  Sender: FDA-Public Use
  Company Number: None

PATIENT
  Age: 71 Year
  Sex: Male

DRUGS (1)
  1. DESMOPRESSIN ACETATE. [Suspect]
     Active Substance: DESMOPRESSIN ACETATE
     Route: 048
     Dates: start: 20141009, end: 20141026

REACTIONS (3)
  - Product substitution issue [None]
  - Pollakiuria [None]
  - Drug ineffective [None]

NARRATIVE: CASE EVENT DATE: 20141027
